FAERS Safety Report 14221782 (Version 3)
Quarter: 2017Q4

REPORT INFORMATION
  Report Type: Spontaneous
  Country: US (occurrence: US)
  Receive Date: 20171124
  Receipt Date: 20171229
  Transmission Date: 20180321
  Serious: Yes (Other)
  Sender: FDA-Public Use
  Company Number: US-ALLERGAN-1767430US

PATIENT
  Age: 85 Year
  Sex: Male
  Weight: 79.37 kg

DRUGS (3)
  1. HYDROCHLOROTHIAZIDE. [Concomitant]
     Active Substance: HYDROCHLOROTHIAZIDE
     Indication: FLUID RETENTION
     Dosage: 25 MG, QD
     Route: 065
     Dates: start: 1992
  2. LIPITOR [Concomitant]
     Active Substance: ATORVASTATIN CALCIUM
     Indication: BLOOD CHOLESTEROL INCREASED
     Dosage: 10 MG, UNK
     Route: 065
     Dates: start: 1997
  3. COMBIGAN [Suspect]
     Active Substance: BRIMONIDINE TARTRATE\TIMOLOL MALEATE
     Indication: GLAUCOMA
     Dosage: 2 GTT, BID
     Route: 047
     Dates: start: 2002, end: 2015

REACTIONS (12)
  - Cataract [Unknown]
  - Vision blurred [Recovering/Resolving]
  - Pupillary deformity [Unknown]
  - Dry eye [Not Recovered/Not Resolved]
  - Lacrimation increased [Unknown]
  - Blepharitis [Not Recovered/Not Resolved]
  - Corneal degeneration [Unknown]
  - Blindness unilateral [Unknown]
  - Glaucoma [Unknown]
  - Glare [Unknown]
  - Optic nerve injury [Unknown]
  - Pupillary reflex impaired [Unknown]

NARRATIVE: CASE EVENT DATE: 2012
